FAERS Safety Report 9781083 (Version 3)
Quarter: 2014Q1

REPORT INFORMATION
  Report Type: Spontaneous
  Country: US (occurrence: None)
  Receive Date: 20131220
  Receipt Date: 20140212
  Transmission Date: 20141002
  Serious: Yes (Hospitalization)
  Sender: FDA-Public Use
  Company Number: 1310-1334

PATIENT
  Age: 63 Year
  Sex: Female

DRUGS (11)
  1. VEGF TRAP-EYE [Suspect]
     Indication: DIABETIC RETINAL OEDEMA
     Dosage: INTRAVITREAL
     Dates: start: 20130320
  2. NOVOLOG INSULIN (NOVOLOG MIX) [Concomitant]
  3. LEVEMIR (INSULIN DETEMIR) [Concomitant]
  4. GEMFIBROZIL (GEMFIBROZIL) [Concomitant]
  5. FUROSEMIDE (FUROSEMIDE) [Concomitant]
  6. DYAZIDE (DYAZIDE) [Concomitant]
  7. METOPROLOL (METOPROLOL) [Concomitant]
  8. VITAMIN D (ERGOCALCIFEROL) [Concomitant]
  9. MAGNESIUM (MAGNESIUM) [Concomitant]
  10. ACCURETIC (GEZOR) [Concomitant]
  11. ANASTROZOLE (ANASTROZOLE) [Concomitant]

REACTIONS (10)
  - Coronary artery stenosis [None]
  - Coronary artery stenosis [None]
  - Atelectasis [None]
  - Hiatus hernia [None]
  - Haemodialysis [None]
  - Angina unstable [None]
  - Acute coronary syndrome [None]
  - Carotid artery stenosis [None]
  - Palpitations [None]
  - Myocardial infarction [None]
